FAERS Safety Report 9845055 (Version 1)
Quarter: 2014Q1

REPORT INFORMATION
  Report Type: Spontaneous
  Country: FR (occurrence: None)
  Receive Date: 20140122
  Receipt Date: 20140122
  Transmission Date: 20141002
  Serious: Yes (Other)
  Sender: FDA-Public Use
  Company Number: SYM-2014-14759

PATIENT
  Sex: 0

DRUGS (3)
  1. FLUROURACIL [Suspect]
     Indication: PRODUCT USED FOR UNKNOWN INDICATION
  2. CISPLATIN (CISPLATIN) (CISPLATIN) [Concomitant]
  3. THERAPEUTIC RADIOPHARMACETUICALS (THERAPEUTIC RADIOPHARMACEUTICALS) [Concomitant]

REACTIONS (3)
  - Pyrexia [None]
  - Pancytopenia [None]
  - Haematotoxicity [None]
